FAERS Safety Report 6269652-8 (Version None)
Quarter: 2009Q3

REPORT INFORMATION
  Report Type: 
  Country: None (occurrence: None)
  Receive Date: 20090714
  Receipt Date: 20090706
  Transmission Date: 20100115
  Serious: Yes (Death)
  Sender: FDA-Public Use
  Company Number: 2007-152786-NL

PATIENT
  Age: 37 Year
  Sex: Female
  Weight: 68 kg

DRUGS (1)
  1. NUVARING [Suspect]
     Indication: CONTRACEPTION
     Dates: start: 20050801, end: 20060502

REACTIONS (9)
  - ANXIETY [None]
  - ASTHENIA [None]
  - CONVULSION [None]
  - FACE INJURY [None]
  - FALL [None]
  - GAIT DISTURBANCE [None]
  - HYPERHIDROSIS [None]
  - HYPERTENSION [None]
  - RESPIRATORY RATE INCREASED [None]
